FAERS Safety Report 18359355 (Version 2)
Quarter: 2020Q4

REPORT INFORMATION
  Report Type: Spontaneous
  Country: IT (occurrence: IT)
  Receive Date: 20201008
  Receipt Date: 20201019
  Transmission Date: 20210114
  Serious: Yes (Hospitalization)
  Sender: FDA-Public Use
  Company Number: NVSC2020IT265841

PATIENT
  Age: 45 Year
  Sex: Female

DRUGS (12)
  1. VALPROATE SODIUM. [Suspect]
     Active Substance: VALPROATE SODIUM
     Indication: BIPOLAR II DISORDER
     Dosage: 750 MG
     Route: 048
  2. CITALOPRAM [Suspect]
     Active Substance: CITALOPRAM HYDROBROMIDE
     Indication: DEPRESSION
     Dosage: 40 MG
     Route: 048
     Dates: end: 2020
  3. LAMICTAL [Suspect]
     Active Substance: LAMOTRIGINE
     Indication: BIPOLAR II DISORDER
     Dosage: 150 MG
     Route: 048
  4. VATRAN [Suspect]
     Active Substance: DIAZEPAM
     Indication: ANXIETY
     Dosage: 6 MG
     Route: 048
     Dates: end: 2020
  5. NAEMIS [Suspect]
     Active Substance: ESTRADIOL\NOMEGESTROL ACETATE
     Indication: ORAL CONTRACEPTION
     Dosage: 1 DF
     Route: 048
     Dates: end: 2020
  6. LITHIUM CARBONATE. [Suspect]
     Active Substance: LITHIUM CARBONATE
     Indication: BIPOLAR II DISORDER
     Dosage: 900 MG
     Route: 048
  7. GABAPENTIN. [Suspect]
     Active Substance: GABAPENTIN
     Indication: PERSONALITY DISORDER
     Dosage: 300 MG, QD
     Route: 048
  8. OLANZAPINE. [Suspect]
     Active Substance: OLANZAPINE
     Indication: PSYCHOTIC DISORDER
     Dosage: 7.5 MG, QD
     Route: 048
  9. DIAZEPAM. [Suspect]
     Active Substance: DIAZEPAM
     Indication: ANXIETY
     Dosage: 6 MG
     Route: 048
  10. DEPAKIN [Suspect]
     Active Substance: VALPROATE SODIUM
     Indication: BIPOLAR II DISORDER
     Dosage: 750 MG
     Route: 048
     Dates: end: 2020
  11. CARBOLITHIUM [Suspect]
     Active Substance: LITHIUM CARBONATE
     Indication: BIPOLAR II DISORDER
     Dosage: 900 MG
     Route: 048
     Dates: end: 2020
  12. LAMOTRIGINE. [Suspect]
     Active Substance: LAMOTRIGINE
     Indication: BIPOLAR II DISORDER
     Dosage: 150 MG
     Route: 048

REACTIONS (4)
  - Bradyphrenia [Recovering/Resolving]
  - Drug abuse [Recovering/Resolving]
  - Speech disorder [Recovering/Resolving]
  - Hypokinesia [Recovering/Resolving]

NARRATIVE: CASE EVENT DATE: 20200708
